FAERS Safety Report 25973588 (Version 1)
Quarter: 2025Q4

REPORT INFORMATION
  Report Type: Spontaneous
  Country: DZ (occurrence: DZ)
  Receive Date: 20251029
  Receipt Date: 20251029
  Transmission Date: 20260117
  Serious: Yes (Hospitalization)
  Sender: Alora Pharma
  Company Number: DZ-OSMOTICA PHARMACEUTICALS-2025ALO02566

PATIENT
  Age: 10 Year
  Sex: Female

DRUGS (2)
  1. CARBAMAZEPINE [Suspect]
     Active Substance: CARBAMAZEPINE
     Dosage: 42 MG/KG, 1X/DAY
     Route: 065
  2. Amitral [Concomitant]
     Indication: Epilepsy
     Dosage: 7 MG/KG, 1X/DAY
     Route: 065

REACTIONS (5)
  - Vitamin D deficiency [Recovered/Resolved]
  - Hypocalcaemia [Recovered/Resolved]
  - Hyperparathyroidism [Recovered/Resolved]
  - Osteitis [Recovered/Resolved]
  - Osteonecrosis [Recovered/Resolved]
